FAERS Safety Report 17971104 (Version 2)
Quarter: 2020Q3

REPORT INFORMATION
  Report Type: Spontaneous
  Country: FR (occurrence: FR)
  Receive Date: 20200701
  Receipt Date: 20200821
  Transmission Date: 20201103
  Serious: Yes (Life-Threatening)
  Sender: FDA-Public Use
  Company Number: FR-GILEAD-2020-0478152

PATIENT
  Age: 58 Year
  Sex: Male

DRUGS (6)
  1. AZTREONAM LYSINE [Suspect]
     Active Substance: AZTREONAM LYSINE
     Indication: ARTHRITIS BACTERIAL
     Dosage: 2 G, Q8H
     Route: 042
     Dates: start: 20200610
  2. LOVENOX [Suspect]
     Active Substance: ENOXAPARIN SODIUM
     Indication: THROMBOSIS PROPHYLAXIS
     Route: 058
     Dates: start: 20200528, end: 20200611
  3. AZTREONAM. [Suspect]
     Active Substance: AZTREONAM
     Indication: ARTHRITIS BACTERIAL
     Dosage: 2 G, Q8H
     Route: 042
     Dates: start: 20200610
  4. FLAGYL [Suspect]
     Active Substance: METRONIDAZOLE\METRONIDAZOLE HYDROCHLORIDE
     Indication: ARTHRITIS BACTERIAL
     Route: 048
     Dates: start: 20200610
  5. PIPERACILLINE / TAZOBACTAM [Suspect]
     Active Substance: PIPERACILLIN SODIUM\TAZOBACTAM SODIUM
     Indication: ARTHRITIS BACTERIAL
     Route: 042
     Dates: start: 20200601, end: 20200610
  6. TEICOPLANINE [Suspect]
     Active Substance: TEICOPLANIN
     Indication: ARTHRITIS BACTERIAL
     Route: 042
     Dates: start: 20200602, end: 20200612

REACTIONS (1)
  - Thrombocytopenia [Recovering/Resolving]

NARRATIVE: CASE EVENT DATE: 20200611
